FAERS Safety Report 14757718 (Version 3)
Quarter: 2018Q2

REPORT INFORMATION
  Report Type: Report from Study
  Country: ES (occurrence: ES)
  Receive Date: 20180413
  Receipt Date: 20180427
  Transmission Date: 20180711
  Serious: Yes (Hospitalization)
  Sender: FDA-Public Use
  Company Number: ES-PFIZER INC-2018144268

PATIENT
  Age: 64 Year
  Sex: Male
  Weight: 74.3 kg

DRUGS (9)
  1. PEMBROLIZUMAB. [Suspect]
     Active Substance: PEMBROLIZUMAB
     Dosage: 200 MG, EVERY 3 WEEKS
     Route: 042
     Dates: start: 20180323
  2. METFORMIN [Concomitant]
     Active Substance: METFORMIN HYDROCHLORIDE
     Dosage: 50 MG, UNK
     Dates: start: 201501
  3. PEMBROLIZUMAB. [Suspect]
     Active Substance: PEMBROLIZUMAB
     Indication: METASTATIC RENAL CELL CARCINOMA
     Dosage: 200 MG, EVERY 3 WEEKS (VOLUME OF INFUSION: 58 ML)
     Route: 042
     Dates: start: 20170419, end: 20180302
  4. FORTASEC [Concomitant]
     Active Substance: LOPERAMIDE HYDROCHLORIDE
     Dosage: 1 DF, UNK
     Dates: start: 20170829
  5. EUTIROX [Concomitant]
     Active Substance: LEVOTHYROXINE SODIUM
     Indication: PROPHYLAXIS
     Dosage: 25 MG, UNK
     Dates: start: 20180323, end: 20180409
  6. AXITINIB [Suspect]
     Active Substance: AXITINIB
     Indication: METASTATIC RENAL CELL CARCINOMA
     Dosage: 5 MG, 2X/DAY
     Route: 048
     Dates: start: 20170419
  7. FRENADOL [Concomitant]
     Active Substance: ACETAMINOPHEN\CHLORPHENIRAMINE MALEATE\DEXTROMETHORPHAN HYDROBROMIDE
     Dosage: 1 DF, UNK
     Dates: start: 20180318, end: 20180322
  8. CO-DIOVAN [Concomitant]
     Active Substance: HYDROCHLOROTHIAZIDE\VALSARTAN
     Dosage: 172.5 MG, UNK
     Dates: start: 20180120
  9. ULTIBRO [Concomitant]
     Active Substance: GLYCOPYRRONIUM\INDACATEROL
     Dosage: 1 DF, UNK
     Dates: start: 201706

REACTIONS (1)
  - Cerebrovascular accident [Recovered/Resolved with Sequelae]

NARRATIVE: CASE EVENT DATE: 20180402
